FAERS Safety Report 9887959 (Version 1)
Quarter: 2014Q1

REPORT INFORMATION
  Report Type: Report from Study
  Country: FR (occurrence: FR)
  Receive Date: 20140211
  Receipt Date: 20140211
  Transmission Date: 20141002
  Serious: Yes (Hospitalization)
  Sender: FDA-Public Use
  Company Number: FR-SANOFI-AVENTIS-2012SA087639

PATIENT
  Age: 47 Year
  Sex: Female
  Weight: 84 kg

DRUGS (4)
  1. TERIFLUNOMIDE [Suspect]
     Indication: MULTIPLE SCLEROSIS RELAPSE
     Dosage: DOSE:1 UNIT(S)
     Route: 048
     Dates: start: 20070516
  2. LIORESAL ^NOVARTIS^ [Concomitant]
  3. FORLAX [Concomitant]
  4. LOVENOX [Concomitant]

REACTIONS (3)
  - Pyelonephritis acute [Recovered/Resolved]
  - Pelvic abscess [Recovered/Resolved]
  - Urinary retention [Recovered/Resolved]
